FAERS Safety Report 21743786 (Version 1)
Quarter: 2022Q4

REPORT INFORMATION
  Report Type: Spontaneous
  Country: SE (occurrence: SE)
  Receive Date: 20221217
  Receipt Date: 20221217
  Transmission Date: 20230112
  Serious: Yes (Other)
  Sender: FDA-Public Use
  Company Number: SE-ROCHE-3226634

PATIENT
  Age: 68 Year
  Sex: Male

DRUGS (21)
  1. MELPHALAN [Suspect]
     Active Substance: MELPHALAN
     Indication: Diffuse large B-cell lymphoma
     Dosage: UNK (3RD SYSTEMIC TREATMENT)
     Route: 065
     Dates: start: 20210115
  2. BENDAMUSTINE [Suspect]
     Active Substance: BENDAMUSTINE
     Indication: Diffuse large B-cell lymphoma
     Dosage: UNK (5TH SYSTEMIC TREATMENT)
     Route: 065
     Dates: start: 20220810
  3. CARBOPLATIN [Suspect]
     Active Substance: CARBOPLATIN
     Indication: Diffuse large B-cell lymphoma
     Dosage: UNK (4TH SYSTEMIC TREATMENT)
     Route: 065
     Dates: start: 20220218
  4. CYTARABINE [Suspect]
     Active Substance: CYTARABINE
     Indication: Diffuse large B-cell lymphoma
     Dosage: UNK (3RD SYSTEMIC TREATMENT)
     Route: 065
     Dates: start: 20210115, end: 20210115
  5. CYTARABINE [Suspect]
     Active Substance: CYTARABINE
     Dosage: UNK (2ND SYSTEMIC TREATMENT)
     Route: 065
     Dates: start: 20201022, end: 20201203
  6. CARMUSTINE [Suspect]
     Active Substance: CARMUSTINE
     Indication: Diffuse large B-cell lymphoma
     Dosage: UNK (3RD SYSTEMIC TREATMENT)
     Route: 065
     Dates: start: 20210115
  7. CYCLOPHOSPHAMIDE [Suspect]
     Active Substance: CYCLOPHOSPHAMIDE
     Indication: Diffuse large B-cell lymphoma
     Dosage: UNK (1ST SYSTEMIC TREATMENT)
     Route: 065
     Dates: start: 20190903
  8. DEXAMETHASONE [Suspect]
     Active Substance: DEXAMETHASONE
     Indication: Diffuse large B-cell lymphoma
     Dosage: UNK (2ND SYSTEMIC TREATMENT)_
     Route: 065
     Dates: start: 20201022
  9. DOXORUBICIN [Suspect]
     Active Substance: DOXORUBICIN
     Indication: Diffuse large B-cell lymphoma
     Dosage: UNK (1ST SYSTEMIC TREATMENT)
     Route: 065
     Dates: start: 20190903
  10. ETOPOSIDE [Suspect]
     Active Substance: ETOPOSIDE
     Indication: Diffuse large B-cell lymphoma
     Dosage: UNK
     Route: 065
     Dates: start: 20190903, end: 20191216
  11. ETOPOSIDE [Suspect]
     Active Substance: ETOPOSIDE
     Dosage: UNK (4TH SYSTEMIC TREATMENT)
     Route: 065
     Dates: start: 20220218, end: 20220512
  12. ETOPOSIDE [Suspect]
     Active Substance: ETOPOSIDE
     Dosage: UNK (3RD SYSTEMIC TREATMENT)
     Route: 065
     Dates: start: 20210115, end: 20210115
  13. IFOSFAMIDE [Suspect]
     Active Substance: IFOSFAMIDE
     Indication: Diffuse large B-cell lymphoma
     Dosage: UNK (4TH SYSTEMIC TREATMENT)
     Route: 065
     Dates: start: 20220218
  14. OXALIPLATIN [Suspect]
     Active Substance: OXALIPLATIN
     Indication: Diffuse large B-cell lymphoma
     Dosage: UNK
     Route: 065
     Dates: start: 20201022
  15. PREDNISONE [Suspect]
     Active Substance: PREDNISONE
     Indication: Diffuse large B-cell lymphoma
     Dosage: UNK (1ST SYSTEMIC TREATMENT)
     Route: 065
     Dates: start: 20190903
  16. POLIVY [Suspect]
     Active Substance: POLATUZUMAB VEDOTIN-PIIQ
     Indication: Diffuse large B-cell lymphoma
     Dosage: UNK (5TH SYSTEMIC TREATMENT)
     Route: 065
     Dates: start: 20220810
  17. RITUXIMAB [Suspect]
     Active Substance: RITUXIMAB
     Indication: Diffuse large B-cell lymphoma
     Dosage: UNK (1ST SYSTEMIC TREATMENT)
     Route: 065
     Dates: start: 20190903, end: 20191216
  18. RITUXIMAB [Suspect]
     Active Substance: RITUXIMAB
     Dosage: 4TH SYSTEMIC TREATMENT
     Route: 065
     Dates: start: 20220218, end: 20220512
  19. RITUXIMAB [Suspect]
     Active Substance: RITUXIMAB
     Dosage: 2ND SYSTEMIC TREATMENT
     Route: 065
     Dates: start: 20201022, end: 20201203
  20. RITUXIMAB [Suspect]
     Active Substance: RITUXIMAB
     Dosage: 5TH SYSTEMIC TREATMENT
     Route: 065
     Dates: start: 20220810, end: 20220908
  21. VINCRISTINE [Suspect]
     Active Substance: VINCRISTINE
     Indication: Diffuse large B-cell lymphoma
     Dosage: UNK (1ST SYSTEMIC TREATMENT)
     Route: 065
     Dates: start: 20190903

REACTIONS (4)
  - Prostate cancer [Unknown]
  - Off label use [Unknown]
  - Drug ineffective [Unknown]
  - Blood lactate dehydrogenase increased [Unknown]
